FAERS Safety Report 9999469 (Version 1)
Quarter: 2014Q1

REPORT INFORMATION
  Report Type: Spontaneous
  Country: US (occurrence: None)
  Receive Date: 20140311
  Receipt Date: 20140311
  Transmission Date: 20141002
  Serious: No
  Sender: FDA-Public Use
  Company Number: None

PATIENT
  Age: 85 Year
  Sex: Male
  Weight: 97.7 kg

DRUGS (1)
  1. NAPROXEN [Suspect]
     Route: 048
     Dates: start: 20130820, end: 20131001

REACTIONS (2)
  - Cardiac failure [None]
  - Azotaemia [None]
